FAERS Safety Report 7949949-3 (Version None)
Quarter: 2011Q4

REPORT INFORMATION
  Report Type: 
  Country: None (occurrence: None)
  Receive Date: 20111130
  Receipt Date: 20111130
  Transmission Date: 20120403
  Serious: Yes (Other)
  Sender: FDA-Public Use
  Company Number: US-BAYER-2011-114846

PATIENT

DRUGS (3)
  1. ACETYLSALICYLIC ACID SRT [Suspect]
     Indication: ATRIAL FIBRILLATION
     Dosage: DAILY DOSE 325 MG
  2. ANTIBIOTICS [Suspect]
  3. WARFARIN SODIUM [Suspect]
     Indication: ATRIAL FIBRILLATION
     Dosage: FIXED-DOSE 1 TO 3 MG PER DAY

REACTIONS (2)
  - INTERNATIONAL NORMALISED RATIO INCREASED [None]
  - URINARY BLADDER HAEMORRHAGE [None]
